FAERS Safety Report 9529651 (Version 1)
Quarter: 2013Q3

REPORT INFORMATION
  Report Type: Spontaneous
  Country: US (occurrence: US)
  Receive Date: 20130917
  Receipt Date: 20130917
  Transmission Date: 20140515
  Serious: No
  Sender: FDA-Public Use
  Company Number: US-ELI_LILLY_AND_COMPANY-US201309004758

PATIENT
  Sex: Male

DRUGS (3)
  1. CIALIS [Suspect]
     Dosage: 5 MG, QD
     Route: 048
  2. CIALIS [Suspect]
     Dosage: 2.5 MG, QD
     Route: 048
  3. XANAX [Concomitant]
     Indication: MUSCLE RELAXANT THERAPY
     Dosage: 1 DF, PRN

REACTIONS (8)
  - Vision blurred [Unknown]
  - Asthenopia [Unknown]
  - Hypertension [Unknown]
  - Blood pressure decreased [Unknown]
  - Back pain [Unknown]
  - Pain [Unknown]
  - Dyspepsia [Unknown]
  - Inappropriate schedule of drug administration [Unknown]
